FAERS Safety Report 9771268 (Version 1)
Quarter: 2013Q4

REPORT INFORMATION
  Report Type: Spontaneous
  Country: US (occurrence: US)
  Receive Date: 20131218
  Receipt Date: 20131218
  Transmission Date: 20140711
  Serious: Yes (Other)
  Sender: FDA-Public Use
  Company Number: US-B.I. PHARMACEUTICALS,INC./RIDGEFIELD-2013-BI-41785BP

PATIENT
  Sex: Female

DRUGS (12)
  1. SPIRIVA [Suspect]
     Indication: EMPHYSEMA
  2. PROAIR [Concomitant]
     Indication: INHALATION THERAPY
     Route: 055
  3. IPRATROPIUM ABLUTEROL [Concomitant]
     Route: 055
  4. PREDNISONE [Concomitant]
  5. COUGH MEDICINE [Concomitant]
  6. ANTIBIOTIC [Concomitant]
  7. TRAMADOL [Concomitant]
     Indication: PAIN
  8. OTHER MEDICATIONS [Concomitant]
     Indication: BLOOD CHOLESTEROL INCREASED
  9. OTHER MEDICATIONS [Concomitant]
     Indication: DEPRESSION
  10. OTHER MEDICATIONS [Concomitant]
     Indication: GASTROOESOPHAGEAL REFLUX DISEASE
  11. OTHER MEDICATIONS [Concomitant]
     Indication: HYPERSENSITIVITY
  12. VITAMINS [Concomitant]

REACTIONS (1)
  - Glaucoma [Unknown]
